FAERS Safety Report 7062737-8 (Version None)
Quarter: 2010Q4

REPORT INFORMATION
  Report Type: 
  Country: None (occurrence: None)
  Receive Date: 20101026
  Receipt Date: 20100125
  Transmission Date: 20110411
  Serious: No
  Sender: FDA-Public Use
  Company Number: US-PFIZER INC-2010010424

PATIENT
  Age: 78 Year
  Sex: Female
  Weight: 55 kg

DRUGS (16)
  1. LIPITOR [Suspect]
     Indication: BLOOD CHOLESTEROL INCREASED
     Dosage: 20 MG, THREE DAYS A WEEK T 8 OR 8.30PM
     Route: 048
     Dates: start: 20091201
  2. LIPITOR [Suspect]
     Indication: BLOOD TRIGLYCERIDES INCREASED
  3. LIPITOR [Suspect]
     Indication: LOW DENSITY LIPOPROTEIN INCREASED
  4. FENOFIBRIC ACID [Suspect]
     Indication: BLOOD CHOLESTEROL INCREASED
     Dosage: 135 MG, DAILY IN EVENING AT 7PM
     Route: 048
     Dates: start: 20090812
  5. FENOFIBRIC ACID [Suspect]
     Indication: BLOOD TRIGLYCERIDES INCREASED
  6. FENOFIBRIC ACID [Suspect]
     Indication: LOW DENSITY LIPOPROTEIN INCREASED
  7. ALISKIREN [Concomitant]
     Indication: HYPERTENSION
     Dosage: 300 MG, 1X/DAY, 1 IN 24HR
     Route: 048
  8. OLMESARTAN MEDOXOMIL [Concomitant]
     Indication: HYPERTENSION
     Dosage: 40 MG, 1X/DAY, 1 IN 24 HR
     Route: 048
  9. METOPROLOL [Concomitant]
     Indication: HYPERTENSION
     Dosage: 25 MG, 1X/DAY, 1 IN 24 HR
     Route: 048
  10. MULTI-VITAMINS [Concomitant]
     Dosage: UNK, 1 IN 24 HR
     Route: 048
  11. ASCORBIC ACID [Concomitant]
     Dosage: UNK, 1 IN 24 HR
  12. UBIDECARENONE [Concomitant]
     Dosage: 100 MG, 1X/DAY, 1 IN 24 HR
     Route: 048
  13. GLUCOSAMINE WITH MSM [Concomitant]
     Dosage: UNK, 2 TABLET, 1 IN 24 HR
     Route: 048
  14. MAGNESIUM [Concomitant]
     Dosage: UNK, 1 TABLET, 1 IN 24 HR
     Route: 048
  15. ERGOCALCIFEROL [Concomitant]
     Dosage: UNK, 1 TABLET, 1 IN 24 HR
     Route: 048
  16. LINSEED [Concomitant]
     Dosage: UNK, 1 TABLET, 1 IN 24 HR
     Route: 048

REACTIONS (2)
  - RASH [None]
  - URTICARIA [None]
